FAERS Safety Report 17300062 (Version 5)
Quarter: 2023Q1

REPORT INFORMATION
  Report Type: Spontaneous
  Country: DE (occurrence: DE)
  Receive Date: 20200122
  Receipt Date: 20230203
  Transmission Date: 20230417
  Serious: Yes (Hospitalization, Other)
  Sender: FDA-Public Use
  Company Number: None

PATIENT
  Age: 41 Year
  Sex: Female

DRUGS (44)
  1. VALPROIC ACID [Suspect]
     Active Substance: VALPROIC ACID
     Indication: Bipolar disorder
     Dosage: UNK, UNK, QD
     Route: 048
  2. VALPROIC ACID [Suspect]
     Active Substance: VALPROIC ACID
     Dosage: 1800 MG, QD (START DATE: OCT-2013)
     Route: 048
  3. VALPROIC ACID [Suspect]
     Active Substance: VALPROIC ACID
     Dosage: UNK
     Route: 048
  4. VALPROIC ACID [Suspect]
     Active Substance: VALPROIC ACID
     Dosage: 1300-2500 MG DAILY
     Route: 048
  5. VALPROIC ACID [Suspect]
     Active Substance: VALPROIC ACID
     Dosage: (1000-0-1000)  (START DATE: 20-MAY-2014)
     Route: 048
     Dates: end: 20140524
  6. VALPROIC ACID [Suspect]
     Active Substance: VALPROIC ACID
     Dosage: 2300 MILLIGRAM, QD (START DATE: 22-FEB-2014)
     Route: 065
     Dates: end: 20140714
  7. VALPROIC ACID [Suspect]
     Active Substance: VALPROIC ACID
     Dosage: 1000-0-0-1300 (START DATE: 21-FEB-2014)
     Route: 065
  8. VALPROIC ACID [Suspect]
     Active Substance: VALPROIC ACID
     Dosage: 2000 MILLIGRAM, QD (START DATE: 27-JUN-2014)
     Route: 065
     Dates: end: 20140715
  9. VALPROIC ACID [Suspect]
     Active Substance: VALPROIC ACID
     Dosage: 300-0-0-1000 MG
     Route: 065
  10. QUETIAPINE [Suspect]
     Active Substance: QUETIAPINE
     Indication: Bipolar disorder
     Dosage: UNK
     Route: 065
  11. QUETIAPINE [Suspect]
     Active Substance: QUETIAPINE
     Dosage: UNK
     Route: 065
  12. QUETIAPINE [Suspect]
     Active Substance: QUETIAPINE
     Dosage: 200 MILLIGRAM
     Route: 065
  13. QUETIAPINE [Suspect]
     Active Substance: QUETIAPINE
     Dosage: 50-200 MG DAILY
     Route: 048
  14. QUETIAPINE [Suspect]
     Active Substance: QUETIAPINE
     Dosage: 50-100 MG, DAILY (START DATE: OCT-2013)
     Route: 048
  15. QUETIAPINE [Suspect]
     Active Substance: QUETIAPINE
     Dosage: 50-0-0-100MG
     Route: 065
  16. LITHIUM [Suspect]
     Active Substance: LITHIUM
     Indication: Bipolar disorder
     Dosage: LOW DOSE
     Route: 065
  17. LITHIUM [Suspect]
     Active Substance: LITHIUM
     Dosage: 900-2250 MG DAILY
     Route: 048
  18. LITHIUM [Suspect]
     Active Substance: LITHIUM
     Dosage: UNK
     Route: 065
  19. LITHIUM [Suspect]
     Active Substance: LITHIUM
     Dosage: UNK
     Route: 065
  20. LITHIUM [Suspect]
     Active Substance: LITHIUM
     Dosage: 450 - 0 - 0 - 675 MG
     Route: 065
  21. VALPROIC ACID [Suspect]
     Active Substance: VALPROIC ACID
     Indication: Bipolar disorder
     Dosage: UNK, QD
     Route: 048
  22. VALPROIC ACID [Suspect]
     Active Substance: VALPROIC ACID
     Dosage: 2300 MILLIGRAM, QD (START DATE: 06-DEC-2013)
     Route: 065
     Dates: end: 20140221
  23. VALPROIC ACID [Suspect]
     Active Substance: VALPROIC ACID
     Dosage: 1000-0-0-1300 (START DATE: 21-FEB-2014)
     Route: 065
  24. VALPROIC ACID [Suspect]
     Active Substance: VALPROIC ACID
     Dosage: 2000 MILLIGRAM, QD (START DATE: 27-JUN-2014 )
     Route: 065
     Dates: end: 20140715
  25. VALPROIC ACID [Suspect]
     Active Substance: VALPROIC ACID
     Dosage: 2300 MILLIGRAM, QD (START DATE: 15-JUL-2014)
     Route: 048
     Dates: end: 20140725
  26. VALPROATE SODIUM [Suspect]
     Active Substance: VALPROATE SODIUM
     Indication: Bipolar disorder
     Dosage: UNK, QD
     Route: 048
  27. VALPROATE SODIUM [Suspect]
     Active Substance: VALPROATE SODIUM
     Dosage: 300-0-0-1000 MG
  28. VALPROATE SODIUM [Suspect]
     Active Substance: VALPROATE SODIUM
     Dosage: 1800 MILLIGRAM, QD (START DATE: OCT-2013)
     Route: 048
  29. VALPROATE SODIUM [Suspect]
     Active Substance: VALPROATE SODIUM
     Dosage: 1000-0-0-1300
  30. VALPROATE SODIUM [Suspect]
     Active Substance: VALPROATE SODIUM
     Dosage: 2000 MILLIGRAM, QD (START DATE: 27-JUN-2014 )
     Dates: end: 20140715
  31. MIRTAZAPINE [Concomitant]
     Active Substance: MIRTAZAPINE
     Indication: Product used for unknown indication
     Dosage: 30 MILLIGRAM, QD
     Route: 065
  32. MIRTAZAPINE [Concomitant]
     Active Substance: MIRTAZAPINE
     Dosage: 30 MILLIGRAM, QD
     Route: 065
  33. MIRTAZAPINE [Concomitant]
     Active Substance: MIRTAZAPINE
     Dosage: 15 MILLIGRAM, 0-0-0-15MG
     Route: 065
  34. LEVOTHYROXINE SODIUM [Concomitant]
     Active Substance: LEVOTHYROXINE SODIUM
     Indication: Product used for unknown indication
     Dosage: 75 MICROGRAM, QD
     Route: 065
  35. ARIPIPRAZOLE [Concomitant]
     Active Substance: ARIPIPRAZOLE
     Indication: Product used for unknown indication
     Dosage: 5 MILLIGRAM, QD
     Route: 065
  36. ARIPIPRAZOLE [Concomitant]
     Active Substance: ARIPIPRAZOLE
     Dosage: 5 MILLIGRAM, QD
     Route: 065
  37. INSULIN HUMAN [Concomitant]
     Active Substance: INSULIN HUMAN
     Indication: Gestational diabetes
     Dosage: 6 IU, QD START DATE 2014
     Route: 058
  38. AMLODIPINE [Concomitant]
     Active Substance: AMLODIPINE BESYLATE
     Indication: Product used for unknown indication
     Dosage: 5 MILLIGRAM, QD
     Route: 065
  39. AMLODIPINE [Concomitant]
     Active Substance: AMLODIPINE BESYLATE
     Dosage: 1 MG, Q12H, 1-0-0-1 MG
     Route: 065
  40. CITALOPRAM [Concomitant]
     Active Substance: CITALOPRAM HYDROBROMIDE
     Indication: Product used for unknown indication
     Dosage: 20 MILLIGRAM, QD
     Route: 065
  41. PANTOPRAZOLE [Concomitant]
     Active Substance: PANTOPRAZOLE
     Indication: Product used for unknown indication
     Dosage: 40 MILLIGRAM, QD
     Route: 065
  42. LAMOTRIGINE [Concomitant]
     Active Substance: LAMOTRIGINE
     Indication: Product used for unknown indication
     Dosage: 100 MILLIGRAM, QD
     Route: 065
  43. LAMOTRIGINE [Concomitant]
     Active Substance: LAMOTRIGINE
     Dosage: 100 MILLIGRAM, QD
     Route: 065
  44. NOVORAPID [Concomitant]
     Active Substance: INSULIN ASPART
     Indication: Gestational diabetes
     Dosage: 5.5 IU, THROUGHOUT THE DAY START DAY 2014
     Route: 058

REACTIONS (23)
  - Gastric disorder [Unknown]
  - Adverse drug reaction [Unknown]
  - Live birth [Unknown]
  - Bipolar I disorder [Unknown]
  - Gestational diabetes [Unknown]
  - Polyhydramnios [Unknown]
  - Abdominal distension [Unknown]
  - Blood glucose fluctuation [Unknown]
  - Blood glucose increased [Unknown]
  - Frequent bowel movements [Recovered/Resolved]
  - Sciatica [Unknown]
  - Mania [Unknown]
  - Obesity [Unknown]
  - Sedation [Unknown]
  - Hypothyroidism [Unknown]
  - Hypertension [Unknown]
  - Diarrhoea [Unknown]
  - Weight increased [Unknown]
  - Abdominal pain [Recovered/Resolved]
  - Constipation [Unknown]
  - Tremor [Unknown]
  - Maternal exposure during pregnancy [Unknown]
  - Exposure during pregnancy [Unknown]

NARRATIVE: CASE EVENT DATE: 20130101
